FAERS Safety Report 9165919 (Version 1)
Quarter: 2013Q1

REPORT INFORMATION
  Report Type: Report from Study
  Country: ES (occurrence: ES)
  Receive Date: 20130315
  Receipt Date: 20130315
  Transmission Date: 20140127
  Serious: Yes (Hospitalization)
  Sender: FDA-Public Use
  Company Number: ES-ROCHE-1202112

PATIENT
  Age: 39 Year
  Sex: Male

DRUGS (3)
  1. CAPECITABINE [Suspect]
     Indication: PANCREATIC CARCINOMA
     Dosage: LAST DOSE RECEIVED: 830 MG/M2, START DATE OF LAST CYCLE: 16/10/2012
     Route: 048
     Dates: start: 20121016
  2. ERLOTINIB [Suspect]
     Indication: PANCREATIC CARCINOMA
     Dosage: LAST DOSE PRIOR TO SAE: 30/OCT/2012
     Route: 048
     Dates: start: 20121016
  3. GEMCITABINE [Suspect]
     Indication: PANCREATIC CARCINOMA
     Dosage: LAST DOSE RECEIVED 2140 MG, LAST DOSE PRIOR TO SAE: 24/OCT/2012
     Route: 042
     Dates: start: 20121016

REACTIONS (1)
  - Mucosal inflammation [Recovered/Resolved]
